FAERS Safety Report 16147838 (Version 1)
Quarter: 2019Q2

REPORT INFORMATION
  Report Type: Spontaneous
  Country: US (occurrence: US)
  Receive Date: 20190402
  Receipt Date: 20190402
  Transmission Date: 20190711
  Serious: No
  Sender: FDA-Public Use
  Company Number: US-ALLERGAN-1848565US

PATIENT
  Sex: Female
  Weight: 48.07 kg

DRUGS (2)
  1. CYTOTEC [Concomitant]
     Active Substance: MISOPROSTOL
     Indication: PAIN
     Dosage: 200 ?G, QHS
     Route: 065
  2. LILETTA [Suspect]
     Active Substance: LEVONORGESTREL
     Indication: CONTRACEPTION
     Dosage: 52 MG, SINGLE
     Route: 015
     Dates: start: 20180731

REACTIONS (1)
  - Device expulsion [Unknown]
